FAERS Safety Report 12705003 (Version 1)
Quarter: 2016Q3

REPORT INFORMATION
  Report Type: Spontaneous
  Country: GB (occurrence: None)
  Receive Date: 20160831
  Receipt Date: 20160831
  Transmission Date: 20161109
  Serious: Yes (Other)
  Sender: FDA-Public Use
  Company Number: None

PATIENT
  Age: 38 Year
  Sex: Female
  Weight: 90 kg

DRUGS (1)
  1. NEXPLANON [Suspect]
     Active Substance: ETONOGESTREL
     Indication: CONTRACEPTION
     Dosage: 1 IMPLANT ONCE FOR 3-YEARS IMPLANTED INTO ARM
     Dates: start: 20150826, end: 20160830

REACTIONS (2)
  - Malaise [None]
  - Adverse drug reaction [None]

NARRATIVE: CASE EVENT DATE: 20160801
